FAERS Safety Report 22240830 (Version 1)
Quarter: 2023Q2

REPORT INFORMATION
  Report Type: Report from Study
  Country: CA (occurrence: CA)
  Receive Date: 20230421
  Receipt Date: 20230421
  Transmission Date: 20230721
  Serious: Yes (Other)
  Sender: FDA-Public Use
  Company Number: CA-GILEAD-2022-0593136

PATIENT
  Age: 42 Year
  Sex: Female

DRUGS (6)
  1. SACITUZUMAB GOVITECAN-HZIY [Suspect]
     Active Substance: SACITUZUMAB GOVITECAN-HZIY
     Indication: Triple negative breast cancer
     Dosage: 770 MG
     Route: 042
     Dates: start: 20220714, end: 20220825
  2. SACITUZUMAB GOVITECAN-HZIY [Suspect]
     Active Substance: SACITUZUMAB GOVITECAN-HZIY
     Dosage: 580 MG (7.5 MG/KG)
     Route: 042
     Dates: end: 20220927
  3. TAXOL [Concomitant]
     Active Substance: PACLITAXEL
  4. ABRAXANE [Concomitant]
     Active Substance: PACLITAXEL
  5. DOXORUBICIN HYDROCHLORIDE [Concomitant]
     Active Substance: DOXORUBICIN HYDROCHLORIDE
  6. XELODA [Concomitant]
     Active Substance: CAPECITABINE

REACTIONS (5)
  - Disease progression [Unknown]
  - Infusion related reaction [Unknown]
  - Chest discomfort [Not Recovered/Not Resolved]
  - Drug intolerance [Unknown]
  - Off label use [Unknown]

NARRATIVE: CASE EVENT DATE: 20220712
